FAERS Safety Report 11839180 (Version 1)
Quarter: 2015Q4

REPORT INFORMATION
  Report Type: Spontaneous
  Country: ES (occurrence: ES)
  Receive Date: 20151216
  Receipt Date: 20151216
  Transmission Date: 20160305
  Serious: Yes (Death, Other)
  Sender: FDA-Public Use
  Company Number: PHHY2015ES160078

PATIENT

DRUGS (1)
  1. LINEZOLID. [Suspect]
     Active Substance: LINEZOLID
     Indication: ABDOMINAL INFECTION
     Route: 065

REACTIONS (2)
  - Thrombocytopenia [Fatal]
  - Drug ineffective [Unknown]
